FAERS Safety Report 19077032 (Version 1)
Quarter: 2021Q1

REPORT INFORMATION
  Report Type: Spontaneous
  Country: US (occurrence: US)
  Receive Date: 20210331
  Receipt Date: 20210331
  Transmission Date: 20210420
  Serious: No
  Sender: FDA-Public Use
  Company Number: US-HIKMA PHARMACEUTICALS USA INC.-US-H14001-20-05835

PATIENT
  Age: 50 Year
  Sex: Female
  Weight: 191.25 kg

DRUGS (3)
  1. BUTORPHANOL [Suspect]
     Active Substance: BUTORPHANOL
     Indication: CHEST PAIN
  2. BUTORPHANOL [Suspect]
     Active Substance: BUTORPHANOL
     Indication: MIGRAINE
     Route: 045
     Dates: start: 20201211
  3. BUTORPHANOL [Suspect]
     Active Substance: BUTORPHANOL
     Indication: PAIN

REACTIONS (1)
  - Accidental underdose [Not Recovered/Not Resolved]

NARRATIVE: CASE EVENT DATE: 20201212
